FAERS Safety Report 8905696 (Version 1)
Quarter: 2012Q4

REPORT INFORMATION
  Report Type: 
  Country: IN (occurrence: IN)
  Receive Date: 20121113
  Receipt Date: 20121113
  Transmission Date: 20130627
  Serious: Yes (Death, Hospitalization)
  Sender: FDA-Public Use
  Company Number: IN-MYLANLABS-2012S1022765

PATIENT
  Age: 9 Year
  Sex: Female
  Weight: 19 kg

DRUGS (4)
  1. STAVUDINE [Suspect]
     Route: 065
  2. LAMIVUDINE [Concomitant]
     Route: 065
  3. NEVIRAPINE [Concomitant]
     Route: 065
  4. COTRIMOXAZOLE [Concomitant]
     Route: 065

REACTIONS (5)
  - Pancreatitis necrotising [Fatal]
  - Oropharyngeal pain [None]
  - Paraesthesia [None]
  - Hypoaesthesia [None]
  - Respiratory distress [None]
